FAERS Safety Report 8996825 (Version 2)
Quarter: 2013Q1

REPORT INFORMATION
  Report Type: Spontaneous
  Country: BR (occurrence: None)
  Receive Date: 20121220
  Receipt Date: 20121221
  Transmission Date: 20140127
  Serious: Yes (Other)
  Sender: FDA-Public Use
  Company Number: DSA_61476_2012

PATIENT
  Sex: Female

DRUGS (1)
  1. ELIDEL (ELIDEL-PIMECROLIMUS) (NOT SPECIFIED) [Suspect]
     Indication: DERMATITIS ALLERGIC
     Dosage: (DF)
     Route: 061
     Dates: start: 2009, end: 201211

REACTIONS (4)
  - Skin haemorrhage [None]
  - Dermatitis allergic [None]
  - Feeling abnormal [None]
  - Condition aggravated [None]
